FAERS Safety Report 14806466 (Version 2)
Quarter: 2018Q2

REPORT INFORMATION
  Report Type: Spontaneous
  Country: US (occurrence: US)
  Receive Date: 20180425
  Receipt Date: 20180509
  Transmission Date: 20180711
  Serious: Yes (Hospitalization, Other)
  Sender: FDA-Public Use
  Company Number: US-BAYER-2018-080331

PATIENT
  Age: 68 Year
  Sex: Female
  Weight: 81.63 kg

DRUGS (5)
  1. LETROZOLE. [Suspect]
     Active Substance: LETROZOLE
  2. CALCIUM +VIT D [Suspect]
     Active Substance: CALCIUM\VITAMIN D
     Dosage: UNK
  3. PAROXETINE. [Concomitant]
     Active Substance: PAROXETINE
     Dosage: UNK
  4. BAYER LOW DOSE [Suspect]
     Active Substance: ASPIRIN
     Indication: THROMBOSIS PROPHYLAXIS
     Dosage: UNK MG, UNK
     Route: 058
     Dates: start: 201801, end: 20180305
  5. HUMIRA [Suspect]
     Active Substance: ADALIMUMAB
     Indication: ARTHRITIS
     Dosage: 40 MG, UNK
     Route: 058
     Dates: start: 2017, end: 201801

REACTIONS (12)
  - Knee arthroplasty [Unknown]
  - Abdominal discomfort [None]
  - Staphylococcal infection [Not Recovered/Not Resolved]
  - Feeling cold [Recovered/Resolved]
  - Feeling hot [Not Recovered/Not Resolved]
  - Herpes zoster [Recovered/Resolved]
  - Arthralgia [Not Recovered/Not Resolved]
  - Nausea [Recovered/Resolved]
  - Laboratory test abnormal [Unknown]
  - Knee arthroplasty [None]
  - Influenza like illness [Recovered/Resolved]
  - Peptostreptococcus infection [Not Recovered/Not Resolved]

NARRATIVE: CASE EVENT DATE: 201801
